FAERS Safety Report 10283582 (Version 1)
Quarter: 2014Q3

REPORT INFORMATION
  Report Type: Spontaneous
  Country: US (occurrence: None)
  Receive Date: 20140703
  Receipt Date: 20140703
  Transmission Date: 20150326
  Serious: Yes (Death)
  Sender: FDA-Public Use
  Company Number: UNT-2014002020

PATIENT
  Age: 82 Year
  Sex: Female

DRUGS (2)
  1. REVATIO (SILDENAFIL CITRATE) [Concomitant]
  2. TYVASO [Suspect]
     Active Substance: TREPROSTINIL
     Indication: PULMONARY ARTERIAL HYPERTENSION
     Route: 055
     Dates: start: 20140325

REACTIONS (2)
  - Pulmonary arterial hypertension [None]
  - Condition aggravated [None]

NARRATIVE: CASE EVENT DATE: 20140524
